FAERS Safety Report 4847113-8 (Version None)
Quarter: 2005Q4

REPORT INFORMATION
  Report Type: 
  Country: None (occurrence: None)
  Receive Date: 20051202
  Receipt Date: 20051111
  Transmission Date: 20060501
  Serious: Yes (Other)
  Sender: FDA-Public Use
  Company Number: 000#8#2005-00782

PATIENT
  Age: 62 Year
  Sex: Female

DRUGS (4)
  1. ISOSORBIDE DINITRATE [Suspect]
  2. GABAPENTIN [Suspect]
     Dosage: ORAL
     Route: 048
  3. ETHANOL (ETHANOL) [Suspect]
     Dosage: ORAL
     Route: 048
  4. CITALOPRAM HYDROBROMIDE [Suspect]
     Dosage: ORAL
     Route: 048

REACTIONS (9)
  - ALCOHOL POISONING [None]
  - ASPIRATION [None]
  - COMPLETED SUICIDE [None]
  - HYPOTENSION [None]
  - INTESTINAL ISCHAEMIA [None]
  - LETHARGY [None]
  - MULTIPLE DRUG OVERDOSE INTENTIONAL [None]
  - SEPSIS [None]
  - VOMITING [None]
